FAERS Safety Report 20510881 (Version 7)
Quarter: 2022Q2

REPORT INFORMATION
  Report Type: Report from Study
  Country: DE (occurrence: DE)
  Receive Date: 20220224
  Receipt Date: 20220526
  Transmission Date: 20220721
  Serious: Yes (Death, Life-Threatening, Hospitalization, Other)
  Sender: FDA-Public Use
  Company Number: DE-NOVARTISPH-NVSC2022DE040057

PATIENT
  Age: 72 Year
  Sex: Female
  Weight: 75 kg

DRUGS (18)
  1. RIBOCICLIB [Suspect]
     Active Substance: RIBOCICLIB
     Indication: Breast cancer
     Dosage: 600 MG, QD
     Route: 048
     Dates: start: 20220103, end: 20220123
  2. RIBOCICLIB [Suspect]
     Active Substance: RIBOCICLIB
     Dosage: UNK
     Route: 048
     Dates: start: 20220131, end: 20220227
  3. RIBOCICLIB [Suspect]
     Active Substance: RIBOCICLIB
     Dosage: 400 MG
     Route: 048
     Dates: start: 20220228, end: 20220403
  4. ASPIRIN [Concomitant]
     Active Substance: ASPIRIN
     Indication: Transient ischaemic attack
     Dosage: 100 MG, QD
     Route: 048
     Dates: start: 20210701, end: 20220309
  5. BISOPROLOL [Concomitant]
     Active Substance: BISOPROLOL
     Indication: Hypertonia
     Dosage: 2.50 MG, BID
     Route: 048
     Dates: start: 20210604, end: 20220309
  6. BISOPROLOL [Concomitant]
     Active Substance: BISOPROLOL
     Dosage: 5 MG (BEFORE BASELINE)
     Route: 065
     Dates: start: 20210606
  7. BISOPROLOL [Concomitant]
     Active Substance: BISOPROLOL
     Dosage: 5 MG
     Route: 065
     Dates: start: 20220215
  8. TELMISARTAN [Concomitant]
     Active Substance: TELMISARTAN
     Indication: Hypertonia
     Dosage: 80 MG, QD
     Route: 048
     Dates: start: 20210604, end: 20220309
  9. TELMISARTAN [Concomitant]
     Active Substance: TELMISARTAN
     Dosage: 12.5 MG
     Route: 065
     Dates: start: 20210604, end: 20220212
  10. HYDROCHLOROTHIAZIDE [Concomitant]
     Active Substance: HYDROCHLOROTHIAZIDE
     Indication: Hypertonia
     Dosage: 12.50 MG, QD
     Route: 048
     Dates: start: 20210604, end: 20220309
  11. HYDROCHLOROTHIAZIDE [Concomitant]
     Active Substance: HYDROCHLOROTHIAZIDE
     Dosage: 25 MG
     Route: 065
     Dates: start: 20220215
  12. CANDESARTAN [Concomitant]
     Active Substance: CANDESARTAN
     Indication: Hypertonia
     Dosage: 16 MG, BID
     Route: 048
     Dates: start: 20220215, end: 20220309
  13. SPIRIVA [Concomitant]
     Active Substance: TIOTROPIUM BROMIDE MONOHYDRATE
     Indication: Product used for unknown indication
     Dosage: 1.00 UNITS, ONCE DAILY
     Route: 048
     Dates: start: 20210504, end: 20220309
  14. ELIQUIS [Concomitant]
     Active Substance: APIXABAN
     Indication: Anticoagulant therapy
     Dosage: 5 MG, BID
     Route: 048
     Dates: start: 20220215, end: 20220309
  15. TORSEMIDE [Concomitant]
     Active Substance: TORSEMIDE
     Indication: Hypertonia
     Dosage: 10 MG, QD
     Route: 048
     Dates: start: 20220310
  16. ENTRESTO [Concomitant]
     Active Substance: SACUBITRIL\VALSARTAN
     Indication: Cardiac failure
     Dosage: 24 MG, BID
     Route: 048
     Dates: start: 20220310
  17. ENTRESTO [Concomitant]
     Active Substance: SACUBITRIL\VALSARTAN
     Indication: Aortic valve incompetence
  18. SPIRONOLACTONE [Concomitant]
     Active Substance: SPIRONOLACTONE
     Indication: Hypertonia
     Dosage: 25 MG, QD
     Route: 048
     Dates: start: 20220310

REACTIONS (4)
  - Atrial fibrillation [Recovered/Resolved]
  - Coronary artery disease [Fatal]
  - Stenosis [Fatal]
  - Atrial fibrillation [Fatal]

NARRATIVE: CASE EVENT DATE: 20220214
